FAERS Safety Report 18906332 (Version 1)
Quarter: 2021Q1

REPORT INFORMATION
  Report Type: Spontaneous
  Country: CN (occurrence: CN)
  Receive Date: 20210217
  Receipt Date: 20210217
  Transmission Date: 20210420
  Serious: Yes (Other)
  Sender: FDA-Public Use
  Company Number: CN-PFIZER INC-2021122955

PATIENT
  Age: 47 Year
  Sex: Female
  Weight: 60 kg

DRUGS (5)
  1. VANCOMYCIN [Concomitant]
     Active Substance: VANCOMYCIN
     Dosage: 0.5 G, 3X/DAY (Q8H)
     Route: 041
     Dates: start: 20190114, end: 20190129
  2. CEFOPERAZONE SODIUM AND SULBACTAM SODIUM [Concomitant]
     Active Substance: CEFOPERAZONE SODIUM\SULBACTAM SODIUM
     Dosage: 3 G, 3X/DAY (Q8H)
     Route: 041
     Dates: start: 20190115, end: 2019
  3. VORICONAZOLE. [Suspect]
     Active Substance: VORICONAZOLE
     Dosage: 0.2 G, 2X/DAY (Q12H)
     Route: 041
     Dates: start: 201901, end: 20190210
  4. VORICONAZOLE. [Suspect]
     Active Substance: VORICONAZOLE
     Indication: ANTIFUNGAL TREATMENT
     Dosage: 0.4 G
     Route: 041
     Dates: start: 20190110
  5. IMIPENEM AND CILASTATIN SODIUM [Concomitant]
     Active Substance: CILASTATIN SODIUM\IMIPENEM
     Dosage: 1 G, 4X/DAY
     Route: 041
     Dates: start: 20190103, end: 20190115

REACTIONS (2)
  - Epilepsy [Recovered/Resolved]
  - Mental disorder [Recovered/Resolved]

NARRATIVE: CASE EVENT DATE: 20190210
